FAERS Safety Report 11177432 (Version 1)
Quarter: 2015Q2

REPORT INFORMATION
  Report Type: Spontaneous
  Country: ZA (occurrence: ZA)
  Receive Date: 20150610
  Receipt Date: 20150610
  Transmission Date: 20150821
  Serious: Yes (Other)
  Sender: FDA-Public Use
  Company Number: ZA-PFIZER INC-2015180853

PATIENT
  Age: 28 Year
  Sex: Female

DRUGS (1)
  1. EFFEXOR XR [Suspect]
     Active Substance: VENLAFAXINE HYDROCHLORIDE
     Indication: ANTIDEPRESSANT THERAPY
     Dosage: 4 CAPSULES OF 75MG DAILY
     Route: 048

REACTIONS (4)
  - Sleep apnoea syndrome [Unknown]
  - Weight increased [Unknown]
  - Nasal obstruction [Unknown]
  - Epigastric discomfort [Unknown]
